FAERS Safety Report 9856194 (Version 4)
Quarter: 2014Q3

REPORT INFORMATION
  Report Type: Report from Study
  Country: ES (occurrence: ES)
  Receive Date: 20140130
  Receipt Date: 20140804
  Transmission Date: 20150326
  Serious: Yes (Death, Other)
  Sender: FDA-Public Use
  Company Number: ES-CELGENEUS-144-21880-14013247

PATIENT

DRUGS (8)
  1. REVLIMID [Suspect]
     Active Substance: LENALIDOMIDE
     Route: 048
     Dates: start: 201009, end: 201212
  2. DEXAMETHASONE. [Concomitant]
     Active Substance: DEXAMETHASONE
     Indication: AMYLOIDOSIS
     Dosage: 20 MILLIGRAM
     Route: 048
  3. BORTEZOMIB [Concomitant]
     Active Substance: BORTEZOMIB
     Indication: AMYLOIDOSIS
     Route: 065
  4. REVLIMID [Suspect]
     Active Substance: LENALIDOMIDE
     Indication: AMYLOIDOSIS
     Dosage: 15 MILLIGRAM
     Route: 048
     Dates: start: 201009, end: 201212
  5. LMWH [Concomitant]
     Indication: THROMBOSIS PROPHYLAXIS
     Route: 048
  6. CYCLOPHOSPHAMIDE. [Concomitant]
     Active Substance: CYCLOPHOSPHAMIDE
     Indication: AMYLOIDOSIS
     Dosage: 300 MILLIGRAM/SQ. METER
     Route: 041
  7. DEXAMETHASONE. [Concomitant]
     Active Substance: DEXAMETHASONE
     Dosage: 20 MILLIGRAM
     Route: 048
  8. ACETYLSALICYLIC ACID [Concomitant]
     Active Substance: ASPIRIN
     Indication: THROMBOSIS PROPHYLAXIS
     Dosage: 100 MILLIGRAM
     Route: 048

REACTIONS (23)
  - Tremor [Unknown]
  - Arrhythmia [Fatal]
  - Blood creatinine increased [Unknown]
  - Rash [Unknown]
  - Infection [Unknown]
  - Renal amyloidosis [Fatal]
  - Renal impairment [Unknown]
  - Affective disorder [Unknown]
  - Gastrointestinal disorder [Unknown]
  - Myopathy [Unknown]
  - Dizziness [Unknown]
  - No therapeutic response [Unknown]
  - Cardiac amyloidosis [Fatal]
  - Intestinal perforation [Unknown]
  - Haematotoxicity [Unknown]
  - Oedema peripheral [Unknown]
  - Pulmonary embolism [Unknown]
  - Diarrhoea [Unknown]
  - Respiratory distress [Unknown]
  - Amyloidosis [Unknown]
  - Sudden death [Fatal]
  - Neuropathy peripheral [Unknown]
  - Fatigue [Unknown]
